FAERS Safety Report 7408285-4 (Version None)
Quarter: 2011Q2

REPORT INFORMATION
  Report Type: 
  Country: None (occurrence: None)
  Receive Date: 20110412
  Receipt Date: 20110401
  Transmission Date: 20111010
  Serious: Yes (Hospitalization)
  Sender: FDA-Public Use
  Company Number: FR-JNJFOC-20110401537

PATIENT
  Age: 87 Year
  Sex: Female

DRUGS (3)
  1. AUGMENTIN [Suspect]
     Indication: LUNG DISORDER
     Route: 048
  2. TAVANIC [Suspect]
     Indication: LUNG DISORDER
     Route: 065
  3. TIENAM [Suspect]
     Indication: LUNG DISORDER
     Route: 042

REACTIONS (3)
  - DRUG INEFFECTIVE [None]
  - CHOLANGITIS [None]
  - CLOSTRIDIUM DIFFICILE COLITIS [None]
